FAERS Safety Report 5156729-3 (Version None)
Quarter: 2006Q4

REPORT INFORMATION
  Report Type: 
  Country: None (occurrence: None)
  Receive Date: 20061115
  Receipt Date: 20061102
  Transmission Date: 20070319
  Serious: Yes (Other)
  Sender: FDA-Public Use
  Company Number: 2006-281

PATIENT
  Age: 43 Year
  Sex: Male

DRUGS (7)
  1. CITALOPRAM HYDROBROMIDE [Suspect]
     Dosage: 280MG
  2. AMLODIPINE [Suspect]
  3. ACETYLSALICYLIC ACID SRT [Suspect]
  4. ACETAMINOPHEN [Suspect]
  5. FLUOXETINE [Suspect]
  6. FOLIC ACID [Suspect]
  7. PERINDOPRIL ERBUMINE [Suspect]

REACTIONS (3)
  - ALCOHOL USE [None]
  - HYPOTENSION [None]
  - MULTIPLE DRUG OVERDOSE [None]
